FAERS Safety Report 20577290 (Version 1)
Quarter: 2022Q1

REPORT INFORMATION
  Report Type: Spontaneous
  Country: US (occurrence: None)
  Receive Date: 20220309
  Receipt Date: 20220309
  Transmission Date: 20220423
  Serious: No
  Sender: FDA-Public Use
  Company Number: None

PATIENT
  Sex: Female
  Weight: 60.78 kg

DRUGS (5)
  1. COPAXONE [Suspect]
     Active Substance: GLATIRAMER ACETATE
     Indication: Multiple sclerosis
     Dosage: FREQUENCY : 3 TIMES A WEEK;?
     Route: 058
     Dates: start: 20220127
  2. GABAPENTIN [Concomitant]
  3. ELIQUIS [Concomitant]
     Active Substance: APIXABAN
  4. PREDNISONE [Concomitant]
     Active Substance: PREDNISONE
  5. EPCLUSA [Concomitant]
     Active Substance: SOFOSBUVIR\VELPATASVIR

REACTIONS (3)
  - Injection site mass [None]
  - Injection site bruising [None]
  - Injection site pain [None]
